FAERS Safety Report 9638382 (Version 1)
Quarter: 2013Q4

REPORT INFORMATION
  Report Type: Spontaneous
  Country: TR (occurrence: TR)
  Receive Date: 20131022
  Receipt Date: 20131022
  Transmission Date: 20140711
  Serious: Yes (Other)
  Sender: FDA-Public Use
  Company Number: TR-GLAXOSMITHKLINE-B0933324A

PATIENT
  Age: 36 Year
  Sex: Male

DRUGS (4)
  1. BUPROPION [Suspect]
     Indication: EX-TOBACCO USER
     Dosage: 300MG PER DAY
     Route: 065
  2. RISPERIDONE [Suspect]
     Indication: SCHIZOAFFECTIVE DISORDER
     Dosage: 6MG PER DAY
     Route: 065
  3. BIPERIDEN [Suspect]
     Indication: EXTRAPYRAMIDAL DISORDER
  4. VALPROIC ACID [Concomitant]
     Indication: SCHIZOAFFECTIVE DISORDER
     Dosage: 1000MG PER DAY

REACTIONS (14)
  - Acute psychosis [Recovering/Resolving]
  - Extrapyramidal disorder [Recovering/Resolving]
  - Psychotic disorder [Recovering/Resolving]
  - General physical health deterioration [Unknown]
  - Logorrhoea [Unknown]
  - Elevated mood [Unknown]
  - Abnormal behaviour [Unknown]
  - Speech disorder [Unknown]
  - Delusion of grandeur [Unknown]
  - Paranoia [Unknown]
  - Persecutory delusion [Unknown]
  - Ideas of reference [Unknown]
  - Hallucinations, mixed [Unknown]
  - Insomnia [Unknown]
